FAERS Safety Report 6061492-8 (Version None)
Quarter: 2009Q1

REPORT INFORMATION
  Report Type: 
  Country: None (occurrence: None)
  Receive Date: 20090202
  Receipt Date: 20090128
  Transmission Date: 20090719
  Serious: Yes (Death)
  Sender: FDA-Public Use
  Company Number: US-CELGENEUS-163-20785-09011515

PATIENT
  Sex: Male

DRUGS (1)
  1. THALOMID [Suspect]
     Indication: ERYTHEMA NODOSUM LEPROSUM
     Route: 048
     Dates: start: 20080305, end: 20090101

REACTIONS (1)
  - MULTI-ORGAN FAILURE [None]
